FAERS Safety Report 23338666 (Version 1)
Quarter: 2023Q4

REPORT INFORMATION
  Report Type: Spontaneous
  Country: US (occurrence: US)
  Receive Date: 20231226
  Receipt Date: 20231226
  Transmission Date: 20240110
  Serious: No
  Sender: FDA-Public Use
  Company Number: US-009507513-2312USA005522

PATIENT
  Age: 12 Year
  Sex: Male

DRUGS (6)
  1. NOXAFIL [Suspect]
     Active Substance: POSACONAZOLE
     Indication: Antifungal prophylaxis
     Dosage: 200 MILLIGRAM, QAM
     Route: 048
  2. NOXAFIL [Suspect]
     Active Substance: POSACONAZOLE
     Dosage: 300 MILLIGRAM, QPM (16 DAYS)
     Route: 048
  3. NOXAFIL [Suspect]
     Active Substance: POSACONAZOLE
     Dosage: 1511 NANOGRAM PER MILLIGRAM
     Route: 048
  4. NOXAFIL [Suspect]
     Active Substance: POSACONAZOLE
     Dosage: 200 NANOGRAM PER MILLIGRAM LEVEL
  5. NOXAFIL [Suspect]
     Active Substance: POSACONAZOLE
     Dosage: 300 MILLIGRAM, QPM
  6. NOXAFIL [Suspect]
     Active Substance: POSACONAZOLE
     Dosage: 689 NANOGRAM PER MILLIGRAM LEVEL

REACTIONS (4)
  - Drug level below therapeutic [Unknown]
  - Wrong technique in product usage process [Unknown]
  - Incorrect dose administered [Unknown]
  - Incorrect route of product administration [Unknown]
